FAERS Safety Report 9365838 (Version 1)
Quarter: 2013Q2

REPORT INFORMATION
  Report Type: Spontaneous
  Country: AU (occurrence: AU)
  Receive Date: 20130625
  Receipt Date: 20130625
  Transmission Date: 20140414
  Serious: Yes (Disabling, Other)
  Sender: FDA-Public Use
  Company Number: PHHY2013AU054929

PATIENT
  Age: 46 Year
  Sex: Female

DRUGS (6)
  1. AFINITOR [Suspect]
     Indication: BREAST CANCER METASTATIC
     Dosage: 10 MG, UNK
     Route: 048
     Dates: start: 20130315
  2. AFINITOR [Suspect]
     Dosage: 10 MG ALTERNATING TO 5 MG DAILY
     Route: 048
     Dates: start: 201304
  3. AFINITOR [Suspect]
     Dosage: 5 MG DAILY
     Route: 048
     Dates: start: 201305
  4. AROMASIN [Concomitant]
     Dosage: 25 MG, UNK
     Dates: start: 201303
  5. MOVAC [Concomitant]
     Dosage: 10 MG, UNK
  6. NEXIUM [Concomitant]
     Dosage: 20 MG, UNK

REACTIONS (6)
  - Uterine leiomyoma [Unknown]
  - Nausea [Recovering/Resolving]
  - Rash [Recovering/Resolving]
  - Decreased appetite [Recovering/Resolving]
  - Fatigue [Not Recovered/Not Resolved]
  - Ascites [Unknown]
